FAERS Safety Report 6046220-4 (Version None)
Quarter: 2009Q1

REPORT INFORMATION
  Report Type: 
  Country: None (occurrence: None)
  Receive Date: 20090122
  Receipt Date: 20090111
  Transmission Date: 20090719
  Serious: Yes (Hospitalization, Other)
  Sender: FDA-Public Use
  Company Number: FR-PFIZER INC-2008151923

PATIENT

DRUGS (3)
  1. CELECOXIB [Suspect]
     Indication: PAIN
     Dosage: 200 MG, 1X/DAY
     Route: 048
     Dates: start: 20020901, end: 20081212
  2. CELECOXIB [Suspect]
     Indication: INFLAMMATION
     Route: 048
     Dates: start: 20020901, end: 20081212
  3. CELECOXIB [Suspect]
     Indication: OSTEOARTHRITIS

REACTIONS (9)
  - ANGINA PECTORIS [None]
  - ARRHYTHMIA [None]
  - ASTHENIA [None]
  - DIZZINESS [None]
  - FALL [None]
  - LUMBAR SPINAL STENOSIS [None]
  - OXYGEN SATURATION DECREASED [None]
  - SPINAL OSTEOARTHRITIS [None]
  - SYNCOPE [None]
